FAERS Safety Report 7684744-4 (Version None)
Quarter: 2011Q3

REPORT INFORMATION
  Report Type: 
  Country: None (occurrence: None)
  Receive Date: 20110816
  Receipt Date: 20110803
  Transmission Date: 20111222
  Serious: Yes (Hospitalization, Other)
  Sender: FDA-Public Use
  Company Number: US-ELI_LILLY_AND_COMPANY-US201006004404

PATIENT
  Sex: Female

DRUGS (7)
  1. VITAMIN TAB [Concomitant]
  2. DIURETICS [Concomitant]
  3. FORTEO [Suspect]
     Indication: OSTEOPOROSIS
     Dosage: 20 UG, DAILY (1/D)
     Route: 065
     Dates: start: 20100501
  4. ANTIHYPERTENSIVES [Concomitant]
     Dosage: UNK
  5. HUMIRA [Concomitant]
  6. FORTEO [Suspect]
     Dosage: 20 UG, QD
     Dates: end: 20110501
  7. CORTICOSTEROIDS [Concomitant]

REACTIONS (5)
  - EYE DISORDER [None]
  - DIARRHOEA [None]
  - PANCREATITIS ACUTE [None]
  - DIZZINESS [None]
  - RETINAL DISORDER [None]
